FAERS Safety Report 12807377 (Version 2)
Quarter: 2016Q4

REPORT INFORMATION
  Report Type: Spontaneous
  Country: JP (occurrence: JP)
  Receive Date: 20161004
  Receipt Date: 20161014
  Transmission Date: 20170207
  Serious: Yes (Hospitalization)
  Sender: FDA-Public Use
  Company Number: JP-ELI_LILLY_AND_COMPANY-JP201609011236

PATIENT
  Age: 77 Year
  Sex: Female
  Weight: 53 kg

DRUGS (8)
  1. TRAMCET [Suspect]
     Active Substance: ACETAMINOPHEN\TRAMADOL
     Indication: LUMBAR SPINAL STENOSIS
     Dosage: 37.5 MG, TID
     Route: 048
     Dates: start: 20160721, end: 20160816
  2. CYMBALTA [Suspect]
     Active Substance: DULOXETINE HYDROCHLORIDE
     Indication: DEPRESSION
     Dosage: 20 MG, QD
     Route: 048
     Dates: start: 20160728, end: 20160809
  3. TRAMAL [Suspect]
     Active Substance: TRAMADOL
     Indication: LUMBAR SPINAL STENOSIS
     Dosage: 25 MG, BID
     Route: 048
     Dates: start: 20160716, end: 20160721
  4. CELECOX [Concomitant]
     Active Substance: CELECOXIB
     Indication: LUMBAR SPINAL STENOSIS
     Dosage: 100 MG, BID
     Route: 048
     Dates: start: 20160716, end: 20160912
  5. LYRICA [Concomitant]
     Active Substance: PREGABALIN
     Indication: LUMBAR SPINAL STENOSIS
     Dosage: 25 MG, BID
     Route: 048
     Dates: start: 20160716, end: 20160912
  6. CYMBALTA [Suspect]
     Active Substance: DULOXETINE HYDROCHLORIDE
     Dosage: 30 MG, QD
     Route: 048
     Dates: start: 20160810, end: 20160905
  7. CYMBALTA [Suspect]
     Active Substance: DULOXETINE HYDROCHLORIDE
     Dosage: 40 MG, QD
     Route: 048
     Dates: start: 20160906, end: 20160914
  8. TRAMAL [Suspect]
     Active Substance: TRAMADOL
     Dosage: 50 MG, TID
     Route: 048
     Dates: start: 20160809, end: 20160912

REACTIONS (3)
  - Spinal compression fracture [Recovering/Resolving]
  - Fall [Recovered/Resolved]
  - Depression [Recovering/Resolving]

NARRATIVE: CASE EVENT DATE: 20160802
